FAERS Safety Report 23085135 (Version 2)
Quarter: 2024Q1

REPORT INFORMATION
  Report Type: Report from Study
  Country: CA (occurrence: CA)
  Receive Date: 20231019
  Receipt Date: 20240117
  Transmission Date: 20240410
  Serious: Yes (Other)
  Sender: FDA-Public Use
  Company Number: CA-TAKEDA-2023TUS097627

PATIENT
  Sex: Female

DRUGS (9)
  1. VEDOLIZUMAB [Suspect]
     Active Substance: VEDOLIZUMAB
     Indication: Crohn^s disease
     Dosage: 300 MILLIGRAM
     Route: 042
     Dates: start: 20230925, end: 20230925
  2. SKYRIZI [Concomitant]
     Active Substance: RISANKIZUMAB-RZAA
     Dosage: UNK
     Route: 058
  3. MORPHINE [Concomitant]
     Active Substance: MORPHINE
     Dosage: 5 MILLIGRAM
     Route: 048
  4. MESALAMINE [Concomitant]
     Active Substance: MESALAMINE
     Dosage: UNK
  5. METHOTREXATE SODIUM [Concomitant]
     Active Substance: METHOTREXATE SODIUM
     Indication: Hepatitis
     Dosage: UNK
  6. Aza [Concomitant]
     Dosage: UNK
  7. REMICADE [Concomitant]
     Active Substance: INFLIXIMAB
     Indication: Alopecia
     Dosage: UNK
     Dates: start: 2021, end: 202209
  8. STELARA [Concomitant]
     Active Substance: USTEKINUMAB
     Indication: Prostatic atrophy
     Dosage: UNK
     Dates: start: 202209, end: 202302
  9. UPADACITINIB [Concomitant]
     Active Substance: UPADACITINIB
     Dosage: UNK
     Dates: start: 202302, end: 202307

REACTIONS (12)
  - Abdominal abscess [Unknown]
  - Acute kidney injury [Unknown]
  - Large intestine perforation [Unknown]
  - Intestinal stenosis [Unknown]
  - Gastrointestinal stoma complication [Unknown]
  - Hypomagnesaemia [Unknown]
  - Tremor [Unknown]
  - Palpitations [Unknown]
  - Asthenia [Unknown]
  - Malaise [Unknown]
  - Weight decreased [Unknown]
  - Emotional distress [Unknown]
